FAERS Safety Report 4963645-6 (Version None)
Quarter: 2006Q2

REPORT INFORMATION
  Report Type: 
  Country: None (occurrence: None)
  Receive Date: 20060405
  Receipt Date: 20060324
  Transmission Date: 20061013
  Serious: Yes (Hospitalization)
  Sender: FDA-Public Use
  Company Number: IT-BOEHRINGER INGELHEIM PHARMACEUTICALS, INC.-2006-DE-01572GD

PATIENT

DRUGS (5)
  1. TAMSULOSIN HCL [Suspect]
     Indication: CALCULUS URETERIC
  2. AESCULUS HIPPOCASTANUM [Suspect]
     Indication: CALCULUS URETERIC
  3. DICLOFENAC [Suspect]
     Indication: CALCULUS URETERIC
  4. OMEPRAZOLE [Suspect]
  5. LEVOFLOXACIN [Suspect]

REACTIONS (2)
  - ABDOMINAL PAIN [None]
  - HYPOTENSION [None]
